FAERS Safety Report 17188611 (Version 1)
Quarter: 2019Q4

REPORT INFORMATION
  Report Type: Other
  Country: US (occurrence: US)
  Receive Date: 20191222
  Receipt Date: 20191222
  Transmission Date: 20200122
  Serious: No
  Sender: FDA-Public Use
  Company Number: US-ACORDA-ACO_162067_2019

PATIENT
  Sex: Male

DRUGS (2)
  1. INBRIJA [Suspect]
     Active Substance: LEVODOPA
     Indication: PARKINSON^S DISEASE
     Dosage: 42 MILLIGRAM, PRN (INHALE CONTENTS OF 2 CAPSULES AS NEEDED FOR SYMPTOMS OF AN OFF PERIOD, NOT TO EXC
     Dates: start: 20191023
  2. INBRIJA [Suspect]
     Active Substance: LEVODOPA
     Indication: ON AND OFF PHENOMENON

REACTIONS (4)
  - Therapy cessation [Unknown]
  - Drug ineffective [Unknown]
  - Incorrect dose administered [Unknown]
  - Cough [Recovered/Resolved]
